FAERS Safety Report 7551306-9 (Version None)
Quarter: 2011Q2

REPORT INFORMATION
  Report Type: 
  Country: None (occurrence: None)
  Receive Date: 20110616
  Receipt Date: 20110613
  Transmission Date: 20111010
  Serious: Yes (Disabling, Other)
  Sender: FDA-Public Use
  Company Number: US-PFIZER INC-2011129822

PATIENT
  Sex: Male

DRUGS (1)
  1. TIKOSYN [Suspect]
     Dosage: 250 UG, 2X/DAY

REACTIONS (1)
  - CARDIAC ABLATION [None]
